FAERS Safety Report 6635098-3 (Version None)
Quarter: 2010Q1

REPORT INFORMATION
  Report Type: 
  Country: None (occurrence: None)
  Receive Date: 20100315
  Receipt Date: 20100303
  Transmission Date: 20100710
  Serious: Yes (Hospitalization, Other)
  Sender: FDA-Public Use
  Company Number: PHEH2008US06120

PATIENT
  Sex: Female

DRUGS (20)
  1. ELIDEL [Suspect]
     Indication: ECZEMA
     Dosage: UNK
     Route: 061
     Dates: start: 20030301
  2. ZYRTEC [Concomitant]
     Dosage: 5-10 MG / DAILY
  3. ATIVAN [Concomitant]
  4. VITAMIN TAB [Concomitant]
  5. ADVIL LIQUI-GELS [Concomitant]
  6. PERCOCET [Concomitant]
  7. NEXIUM [Concomitant]
  8. IBUPROFEN [Concomitant]
  9. TYLENOL-500 [Concomitant]
  10. SENOKOT                                 /UNK/ [Concomitant]
  11. NEULASTA [Concomitant]
  12. ASPIRIN [Concomitant]
     Dosage: 81 MG / DAILY
  13. CORTISONE [Concomitant]
     Dosage: UNK
     Route: 062
  14. ALDARA [Concomitant]
  15. HYDROXYZINE [Concomitant]
  16. CEPHALEXIN [Concomitant]
  17. TRIAMCINOLONE [Concomitant]
  18. ZITHROMAX [Concomitant]
  19. DOXYCYCLINE [Concomitant]
  20. ZANTAC [Concomitant]

REACTIONS (25)
  - ALOPECIA [None]
  - ASTHENIA [None]
  - BLADDER DILATATION [None]
  - CAESAREAN SECTION [None]
  - CYST [None]
  - DERMATOMYOSITIS [None]
  - DRUG EXPOSURE DURING PREGNANCY [None]
  - DYSPAREUNIA [None]
  - ECZEMA [None]
  - FATIGUE [None]
  - HEPATOMEGALY [None]
  - HODGKIN'S DISEASE [None]
  - KELOID SCAR [None]
  - LARYNGOCELE [None]
  - LYMPHADENOPATHY [None]
  - MYALGIA [None]
  - NIGHT SWEATS [None]
  - PNEUMOTHORAX [None]
  - PYELOCALIECTASIS [None]
  - RASH [None]
  - RASH MACULAR [None]
  - RHINITIS ALLERGIC [None]
  - SKIN LESION [None]
  - THROMBOSIS [None]
  - VAGINAL HAEMORRHAGE [None]
